FAERS Safety Report 23171600 (Version 4)
Quarter: 2023Q4

REPORT INFORMATION
  Report Type: Report from Study
  Country: US (occurrence: US)
  Receive Date: 20231110
  Receipt Date: 20231206
  Transmission Date: 20240109
  Serious: Yes (Hospitalization)
  Sender: FDA-Public Use
  Company Number: US-ARGENX-2023-ARGX-US003431

PATIENT

DRUGS (1)
  1. VYVGART [Suspect]
     Active Substance: EFGARTIGIMOD ALFA-FCAB
     Indication: Myasthenia gravis
     Dosage: 10 MG/KG
     Route: 042

REACTIONS (7)
  - Fall [Unknown]
  - Lower limb fracture [Unknown]
  - Hospitalisation [Recovered/Resolved]
  - Diplopia [Unknown]
  - Vision blurred [Unknown]
  - Myasthenia gravis [Not Recovered/Not Resolved]
  - Headache [Unknown]
